FAERS Safety Report 14103015 (Version 9)
Quarter: 2018Q3

REPORT INFORMATION
  Report Type: Spontaneous
  Country: FR (occurrence: FR)
  Receive Date: 20171018
  Receipt Date: 20180727
  Transmission Date: 20181010
  Serious: Yes (Hospitalization, Other)
  Sender: FDA-Public Use
  Company Number: FR-PFIZER INC-2017442823

PATIENT
  Age: 42 Year
  Sex: Male

DRUGS (8)
  1. GLUCOSE [Concomitant]
     Active Substance: DEXTROSE
     Dosage: 500 ML, UNK
     Route: 042
  2. FLUOROURACIL. [Suspect]
     Active Substance: FLUOROURACIL
     Indication: OESOPHAGEAL ADENOCARCINOMA
     Dosage: 1,200 MG/M2, I.E. 5,500 MG TOTAL DOSE IN 140 ML OF NACL
     Route: 042
  3. SODIUM CHLORIDE. [Concomitant]
     Active Substance: SODIUM CHLORIDE
     Dosage: 140 ML, UNK
     Route: 042
  4. FLUOROURACIL. [Suspect]
     Active Substance: FLUOROURACIL
     Indication: OESOPHAGEAL ADENOCARCINOMA
     Dosage: 400 MG/M2, I.E. 920 MG TOTAL DOSE IN BOLUS IN 100 ML OF 5% GLUCOSE SOLUTION
     Route: 040
  5. OXALIPLATIN. [Suspect]
     Active Substance: OXALIPLATIN
     Indication: OESOPHAGEAL ADENOCARCINOMA
     Dosage: 85 MG/M2, I.E. 190 MG TOTAL DOSE IN 500 ML OF 5% GLUCOSE SOLUTION
     Route: 042
  6. GLUCOSE [Concomitant]
     Active Substance: DEXTROSE
     Dosage: 100 ML, UNK
     Route: 040
  7. FOLINIC ACID [Concomitant]
     Active Substance: LEUCOVORIN
     Indication: GASTROINTESTINAL CANCER METASTATIC
     Dosage: UNK
     Route: 042
  8. FOLINIC ACID [Concomitant]
     Active Substance: LEUCOVORIN
     Indication: METASTASES TO LIVER

REACTIONS (4)
  - Administration site extravasation [Unknown]
  - Bronchospasm [Unknown]
  - Chest discomfort [Unknown]
  - Vocal cord paralysis [Unknown]
